FAERS Safety Report 5190621-3 (Version None)
Quarter: 2006Q4

REPORT INFORMATION
  Report Type: 
  Country: None (occurrence: None)
  Receive Date: 20061222
  Receipt Date: 20061003
  Transmission Date: 20070319
  Serious: No
  Sender: FDA-Public Use
  Company Number: US-BRISTOL-MYERS SQUIBB COMPANY-13529128

PATIENT
  Age: 36 Year
  Sex: Female
  Weight: 90 kg

DRUGS (9)
  1. ORENCIA [Suspect]
     Indication: RHEUMATOID ARTHRITIS
     Route: 042
     Dates: start: 20060821
  2. AMITRIPTYLINE HCL [Concomitant]
  3. VICODIN [Concomitant]
  4. EFFEXOR [Concomitant]
  5. ACTONEL [Concomitant]
  6. PREDNISONE TAB [Concomitant]
  7. ARAVA [Concomitant]
  8. METHOTREXATE [Concomitant]
  9. FOLIC ACID [Concomitant]

REACTIONS (3)
  - INFUSION SITE PAIN [None]
  - INFUSION SITE PARAESTHESIA [None]
  - MUSCULAR WEAKNESS [None]
